FAERS Safety Report 7305570-1 (Version None)
Quarter: 2011Q1

REPORT INFORMATION
  Report Type: 
  Country: None (occurrence: None)
  Receive Date: 20110222
  Receipt Date: 20110222
  Transmission Date: 20110831
  Serious: Yes (Other)
  Sender: FDA-Public Use
  Company Number: US-PFIZER INC-2010170184

PATIENT
  Sex: Male

DRUGS (4)
  1. NARDIL [Suspect]
     Indication: ANXIETY
  2. ASPIRIN [Concomitant]
  3. XANAX [Concomitant]
  4. NARDIL [Suspect]
     Indication: DEPRESSION
     Dosage: 4 DAILY (NOT FURTHER SPECIFIED)
     Dates: start: 19780101

REACTIONS (2)
  - OSTEOARTHRITIS [None]
  - MENISCUS LESION [None]
